FAERS Safety Report 7457445-5 (Version None)
Quarter: 2011Q2

REPORT INFORMATION
  Report Type: 
  Country: None (occurrence: None)
  Receive Date: 20110504
  Receipt Date: 20110421
  Transmission Date: 20111010
  Serious: No
  Sender: FDA-Public Use
  Company Number: US-B.I. PHARMACEUTICALS,INC./RIDGEFIELD-2011-BP-01267BP

PATIENT
  Sex: Female

DRUGS (27)
  1. ESTRADIOL [Concomitant]
  2. NITROGLYCERIN [Concomitant]
     Route: 060
  3. RANEXA [Concomitant]
     Dosage: 1000 MG
  4. ASPIRIN [Concomitant]
     Dosage: 81 MG
  5. NITROGLYCERIN [Concomitant]
  6. VITAMIN D [Concomitant]
     Dosage: 1000 U
  7. MAGNESIUM [Concomitant]
     Dosage: 500 MG
  8. PRADAXA [Suspect]
     Indication: ATRIAL FIBRILLATION
     Dosage: 150 MG
     Route: 048
     Dates: start: 20110114
  9. TYLENOL-500 [Concomitant]
  10. PRILOSEC OTC [Concomitant]
     Dosage: 20 MG
  11. ACETAMINOPHEN AND HYDROCODONE BITARTRATE [Concomitant]
     Indication: BACK PAIN
     Route: 048
  12. MILK OF MAGNESIA TAB [Concomitant]
     Indication: CONSTIPATION
     Route: 048
  13. ALBUTEROL [Concomitant]
     Route: 055
  14. LEVOTHYROXINE SODIUM [Concomitant]
     Dosage: 100 MCG
  15. ALBUTEROL [Concomitant]
  16. ZOCOR [Concomitant]
     Dosage: 40 MG
     Route: 048
  17. MYLANTA [Concomitant]
  18. CARTIA XT [Concomitant]
     Dosage: 120 MG
     Route: 048
  19. PHENAZOPYRIDINE HCL TAB [Concomitant]
  20. FOSAMAX [Concomitant]
  21. POTASSIUM CHLORIDE CR [Concomitant]
     Dosage: 10 MEQ
  22. PRADAXA [Suspect]
     Indication: ANTICOAGULANT THERAPY
  23. TYLENOL PM EXTRA STRENGTH [Concomitant]
     Indication: SLEEP DISORDER
  24. PEPTO BISMOL [Concomitant]
  25. IMODIUM MULTI-SYMPTOM RELIEF [Concomitant]
  26. PULMICORT [Concomitant]
     Dosage: 4 PUF
  27. BUMEX [Concomitant]

REACTIONS (5)
  - RASH [None]
  - SKIN BURNING SENSATION [None]
  - PRURITUS [None]
  - ERYTHEMA [None]
  - HOT FLUSH [None]
